FAERS Safety Report 19020989 (Version 1)
Quarter: 2021Q1

REPORT INFORMATION
  Report Type: Spontaneous
  Country: US (occurrence: US)
  Receive Date: 20210317
  Receipt Date: 20210317
  Transmission Date: 20210420
  Serious: No
  Sender: FDA-Public Use
  Company Number: US-GLENMARK PHARMACEUTICALS-2020GMK046640

PATIENT
  Sex: Female

DRUGS (1)
  1. LITHIUM. [Suspect]
     Active Substance: LITHIUM
     Indication: DEPRESSION
     Dosage: ONCE OR TWICE A DAY (NOT SURE)
     Route: 048
     Dates: start: 201812

REACTIONS (7)
  - Fatigue [Unknown]
  - Osteoporosis [Unknown]
  - Blood calcium increased [Unknown]
  - Bone disorder [Unknown]
  - Anxiety [Unknown]
  - Bone pain [Unknown]
  - Confusional state [Unknown]
